FAERS Safety Report 6177155-4 (Version None)
Quarter: 2009Q2

REPORT INFORMATION
  Report Type: 
  Country: None (occurrence: None)
  Receive Date: 20090504
  Receipt Date: 20090429
  Transmission Date: 20091009
  Serious: Yes (Other)
  Sender: FDA-Public Use
  Company Number: AT-PFIZER INC-2009185583

PATIENT

DRUGS (5)
  1. NORVASC [Suspect]
     Dosage: 2.5 MG, 2X/DAY
     Route: 048
     Dates: start: 20090226, end: 20090227
  2. CAL-C-VITA [Concomitant]
     Dosage: 2 DF, 1X/DAY
     Route: 048
  3. DAFLON [Concomitant]
     Dosage: 500 MG, 2X/DAY
     Route: 048
  4. EUTHYROX [Concomitant]
     Dosage: 100 UG, 1X/DAY
     Route: 048
  5. BUDESONIDE [Concomitant]
     Dosage: 400 UG, 2X/1HUB

REACTIONS (2)
  - PARAESTHESIA [None]
  - VISUAL IMPAIRMENT [None]
